FAERS Safety Report 5456713-6 (Version None)
Quarter: 2007Q3

REPORT INFORMATION
  Report Type: 
  Country: None (occurrence: None)
  Receive Date: 20070918
  Receipt Date: 20061122
  Transmission Date: 20080115
  Serious: No
  Sender: FDA-Public Use
  Company Number: US-ASTRAZENECA-2006UW26023

PATIENT
  Sex: Female

DRUGS (1)
  1. SEROQUEL [Suspect]
     Dosage: 300-400 MG NIGHTLY
     Route: 048
     Dates: start: 20050101

REACTIONS (2)
  - AGITATION [None]
  - BODY TEMPERATURE INCREASED [None]
